FAERS Safety Report 11705513 (Version 1)
Quarter: 2015Q4

REPORT INFORMATION
  Report Type: Spontaneous
  Country: US (occurrence: US)
  Receive Date: 20151106
  Receipt Date: 20151106
  Transmission Date: 20160304
  Serious: Yes (Other)
  Sender: FDA-Public Use
  Company Number: US-ARIAD-2015US005364

PATIENT
  Age: 72 Year
  Sex: Female

DRUGS (1)
  1. ICLUSIG [Suspect]
     Active Substance: PONATINIB
     Indication: OVARIAN CANCER
     Dosage: 45 MG, QD
     Route: 048
     Dates: start: 20150422, end: 20150820

REACTIONS (3)
  - Colitis [Unknown]
  - Metastasis [Unknown]
  - Off label use [Unknown]

NARRATIVE: CASE EVENT DATE: 20150422
